FAERS Safety Report 25785724 (Version 1)
Quarter: 2025Q3

REPORT INFORMATION
  Report Type: Spontaneous
  Country: US (occurrence: US)
  Receive Date: 20250910
  Receipt Date: 20250910
  Transmission Date: 20251020
  Serious: Yes (Life-Threatening, Hospitalization)
  Sender: MYLAN
  Company Number: US-MYLANLABS-2025M1076638

PATIENT
  Age: 64 Year
  Sex: Male

DRUGS (8)
  1. EPINEPHRINE [Suspect]
     Active Substance: EPINEPHRINE
     Indication: Cardiogenic shock
     Dosage: 4 MICROGRAM, QMINUTE (INFUSION)
  2. EPINEPHRINE [Suspect]
     Active Substance: EPINEPHRINE
     Dosage: 4 MICROGRAM, QMINUTE (INFUSION)
     Route: 065
  3. EPINEPHRINE [Suspect]
     Active Substance: EPINEPHRINE
     Dosage: 4 MICROGRAM, QMINUTE (INFUSION)
     Route: 065
  4. EPINEPHRINE [Suspect]
     Active Substance: EPINEPHRINE
     Dosage: 4 MICROGRAM, QMINUTE (INFUSION)
  5. MILRINONE [Suspect]
     Active Substance: MILRINONE
     Indication: Cardiogenic shock
     Dosage: 0.25 MICROGRAM/KILOGRAM, QMINUTE (INFUSION)
  6. MILRINONE [Suspect]
     Active Substance: MILRINONE
     Dosage: 0.25 MICROGRAM/KILOGRAM, QMINUTE (INFUSION)
     Route: 065
  7. MILRINONE [Suspect]
     Active Substance: MILRINONE
     Dosage: 0.25 MICROGRAM/KILOGRAM, QMINUTE (INFUSION)
     Route: 065
  8. MILRINONE [Suspect]
     Active Substance: MILRINONE
     Dosage: 0.25 MICROGRAM/KILOGRAM, QMINUTE (INFUSION)

REACTIONS (1)
  - Drug ineffective [Unknown]
